FAERS Safety Report 8535363 (Version 2)
Quarter: 2013Q2

REPORT INFORMATION
  Report Type: Spontaneous
  Country: US (occurrence: None)
  Receive Date: 20120327
  Receipt Date: 20120709
  Transmission Date: 20140414
  Serious: Yes (Other)
  Sender: FDA-Public Use
  Company Number: PHHY2011US14628

PATIENT
  Age: 60 Year
  Sex: Male

DRUGS (1)
  1. GLEEVEC [Suspect]
     Indication: SOFT TISSUE CANCER
     Route: 048
     Dates: start: 20101215

REACTIONS (6)
  - PNEUMONIA [None]
  - MUSCLE SPASMS [None]
  - OCULAR HYPERAEMIA [None]
  - PYREXIA [None]
  - NASOPHARYNGITIS [None]
  - Swelling [None]
